FAERS Safety Report 7962898-X (Version None)
Quarter: 2011Q4

REPORT INFORMATION
  Report Type: 
  Country: None (occurrence: None)
  Receive Date: 20111207
  Receipt Date: 20111128
  Transmission Date: 20120403
  Serious: Yes (Hospitalization)
  Sender: FDA-Public Use
  Company Number: FR-ASTRAZENECA-2011SE72962

PATIENT
  Age: 89 Year
  Sex: Male

DRUGS (6)
  1. ASPIRIN [Concomitant]
     Dosage: DAILY
     Route: 048
  2. PLAVIX [Concomitant]
     Route: 048
  3. ATORVASTATIN CALCIUM [Suspect]
     Dosage: DAILY
     Route: 048
     Dates: start: 20110801, end: 20110902
  4. BISOPROLOL [Concomitant]
     Route: 048
  5. NEXIUM [Suspect]
     Dosage: DAILY
     Route: 048
     Dates: start: 20110801, end: 20110902
  6. LASIX [Concomitant]
     Route: 048

REACTIONS (2)
  - RASH MACULO-PAPULAR [None]
  - PETECHIAE [None]
